FAERS Safety Report 9284146 (Version 1)
Quarter: 2013Q2

REPORT INFORMATION
  Report Type: Spontaneous
  Country: CA (occurrence: CA)
  Receive Date: 20130510
  Receipt Date: 20130510
  Transmission Date: 20140414
  Serious: Yes (Hospitalization)
  Sender: FDA-Public Use
  Company Number: CA-SANOFI-AVENTIS-2013SA045260

PATIENT
  Age: 75 Year
  Sex: Male
  Weight: 53.47 kg

DRUGS (5)
  1. FUROSEMIDE [Suspect]
     Indication: PRODUCT USED FOR UNKNOWN INDICATION
     Route: 065
  2. RITUXIMAB [Suspect]
     Indication: RHEUMATOID ARTHRITIS
     Route: 042
     Dates: start: 20120312
  3. DIPHENHYDRAMINE HYDROCHLORIDE [Concomitant]
     Indication: PREMEDICATION
     Route: 065
     Dates: start: 20120312
  4. ACETAMINOPHEN [Concomitant]
     Route: 048
     Dates: start: 20120312
  5. METHYLPREDNISOLONE [Concomitant]
     Route: 042
     Dates: start: 20120312

REACTIONS (6)
  - Lower respiratory tract infection [Recovered/Resolved]
  - Pyrexia [Recovered/Resolved]
  - Dyspnoea [Recovered/Resolved]
  - Confusional state [Recovered/Resolved]
  - Limb injury [Recovered/Resolved]
  - Local swelling [Not Recovered/Not Resolved]
